FAERS Safety Report 5466671-6 (Version None)
Quarter: 2007Q3

REPORT INFORMATION
  Report Type: 
  Country: None (occurrence: None)
  Receive Date: 20070924
  Receipt Date: 20070924
  Transmission Date: 20080115
  Serious: Yes (Other)
  Sender: FDA-Public Use
  Company Number: None

PATIENT
  Age: 62 Year
  Sex: Female

DRUGS (4)
  1. GLUCOVANCE [Suspect]
     Dosage: SEVERAL YEARS
     Dates: end: 20050623
  2. LIPITOR [Suspect]
  3. CENTRUM MULTIVITAMINS [Suspect]
  4. ALEVE [Suspect]

REACTIONS (2)
  - CHOLESTASIS [None]
  - HEPATOCELLULAR DAMAGE [None]
